FAERS Safety Report 20674210 (Version 1)
Quarter: 2022Q2

REPORT INFORMATION
  Report Type: Spontaneous
  Country: US (occurrence: None)
  Receive Date: 20220404
  Receipt Date: 20220404
  Transmission Date: 20220721
  Serious: Yes (Hospitalization)
  Sender: FDA-Public Use
  Company Number: None

PATIENT
  Age: 68 Year
  Sex: Male

DRUGS (2)
  1. HUMIRA [Suspect]
     Active Substance: ADALIMUMAB
     Indication: Enteritis
     Dosage: OTHER FREQUENCY : EVERY WEEK;?
     Route: 058
  2. AJOVY [Suspect]
     Active Substance: FREMANEZUMAB-VFRM
     Dosage: OTHER FREQUENCY : MONTHLY;?
     Route: 058

REACTIONS (1)
  - Hospitalisation [None]
